FAERS Safety Report 8998349 (Version 2)
Quarter: 2013Q1

REPORT INFORMATION
  Report Type: Spontaneous
  Country: US (occurrence: US)
  Receive Date: 20130105
  Receipt Date: 20130222
  Transmission Date: 20140127
  Serious: Yes (Other)
  Sender: FDA-Public Use
  Company Number: US-JNJFOC-20121213722

PATIENT
  Age: 77 None
  Sex: Female

DRUGS (21)
  1. XARELTO [Suspect]
     Indication: CEREBROVASCULAR ACCIDENT PROPHYLAXIS
     Dosage: WITH EVENING MEAL
     Route: 048
     Dates: start: 20120822, end: 20130103
  2. XARELTO [Suspect]
     Indication: ATRIAL FIBRILLATION
     Dosage: WITH EVENING MEAL
     Route: 048
     Dates: start: 20120822, end: 20130103
  3. ZINC [Concomitant]
     Route: 065
  4. NISOLDIPINE [Concomitant]
     Indication: BLOOD PRESSURE
     Route: 048
  5. DIGOXIN [Concomitant]
     Indication: CARDIAC DISORDER
     Route: 048
  6. BENICAR [Concomitant]
     Indication: CARDIAC DISORDER
     Route: 048
  7. ATENOLOL [Concomitant]
     Indication: CARDIAC DISORDER
     Route: 048
  8. DOXAZOSIN [Concomitant]
     Indication: CARDIAC DISORDER
     Route: 048
  9. LIPITOR [Concomitant]
     Indication: CARDIAC DISORDER
     Route: 048
  10. VITAMIN C [Concomitant]
     Dosage: AT MORNING
     Route: 065
  11. VITAMIN D [Concomitant]
     Dosage: IN THE MORNING
     Route: 065
  12. ONE A DAY WOMENS^ VITAMIN [Concomitant]
     Dosage: IN THE MORNING
     Route: 065
  13. 7 KETO DHEA [Concomitant]
     Dosage: IN THE MORNING
     Route: 065
  14. UNKNOWN MEDICATION [Concomitant]
     Dosage: IN THE MORNING
     Route: 065
  15. WARFARIN [Concomitant]
     Dosage: IN THE NIGHT
     Route: 065
     Dates: start: 20130111
  16. WARFARIN [Concomitant]
     Dosage: 5 MG/7.5 MG
     Route: 065
  17. TYLENOL [Concomitant]
     Dosage: 1 EVENING
     Route: 065
  18. NASONEX [Concomitant]
     Dosage: IN THE NIGHT
     Route: 065
  19. METRONIDAZOLE [Concomitant]
     Dosage: 0.75 % IN THE NIGHT
     Route: 065
  20. FEMRING [Concomitant]
     Dosage: 05 ESTRADIAL/DAY CHANGE EVERY 3 MO [SIC]??IN THE NIGHT
     Route: 065
  21. NITROFURANTOIN [Concomitant]
     Indication: CYSTITIS
     Dosage: WHEN NEEDED 100 MG THEN 50 MG??IN THE NIGHT
     Route: 065

REACTIONS (8)
  - Oedema peripheral [Recovered/Resolved]
  - Small intestinal haemorrhage [Recovered/Resolved]
  - Dyspnoea [Not Recovered/Not Resolved]
  - Heart valve stenosis [Not Recovered/Not Resolved]
  - Faeces discoloured [Unknown]
  - Abdominal distension [Unknown]
  - Anaemia [Unknown]
  - Weight decreased [Not Recovered/Not Resolved]
